FAERS Safety Report 6320031-4 (Version None)
Quarter: 2009Q3

REPORT INFORMATION
  Report Type: 
  Country: None (occurrence: None)
  Receive Date: 20090822
  Receipt Date: 20081014
  Transmission Date: 20100115
  Serious: No
  Sender: FDA-Public Use
  Company Number: US-ABBOTT-08P-163-0481975-00

PATIENT
  Sex: Female
  Weight: 63.56 kg

DRUGS (11)
  1. NIASPAN [Suspect]
     Indication: CORONARY ARTERY DISEASE
     Dosage: AT HS
     Route: 048
     Dates: start: 20080930, end: 20081006
  2. ASPIRIN [Concomitant]
     Indication: DRUG USE FOR UNKNOWN INDICATION
     Route: 048
  3. CLOPIDOGREL [Concomitant]
     Indication: ANTICOAGULANT THERAPY
     Route: 048
  4. METOPROLOL [Concomitant]
     Indication: CARDIAC DISORDER
     Route: 048
  5. HYDRALAZINE HCL [Concomitant]
     Indication: HYPERTENSION
     Route: 048
  6. ATORVASTATIN CALCIUM [Concomitant]
     Indication: DRUG USE FOR UNKNOWN INDICATION
     Dosage: AT HS
     Route: 048
  7. DIOVAN HCT [Concomitant]
     Indication: HYPERTENSION
     Route: 048
  8. AMLODIPINE MALEATE [Concomitant]
     Indication: HYPERTENSION
     Route: 048
  9. DIPYRIDAMOLE [Concomitant]
     Indication: ANTICOAGULANT THERAPY
     Route: 048
  10. GLIBENCLAMIDE [Concomitant]
     Indication: DIABETES MELLITUS
     Dosage: TWO TABS EVERY A.M.
     Route: 048
  11. DIGOXIN [Concomitant]
     Indication: DRUG USE FOR UNKNOWN INDICATION
     Dates: end: 20081010

REACTIONS (2)
  - DIZZINESS [None]
  - OEDEMA PERIPHERAL [None]
